FAERS Safety Report 7585078-9 (Version None)
Quarter: 2011Q2

REPORT INFORMATION
  Report Type: 
  Country: None (occurrence: None)
  Receive Date: 20110630
  Receipt Date: 20110622
  Transmission Date: 20111010
  Serious: Yes (Hospitalization, Other)
  Sender: FDA-Public Use
  Company Number: US-AMGEN-USACT2011031814

PATIENT
  Age: 71 Year
  Sex: Female

DRUGS (7)
  1. FLAGYL [Concomitant]
     Dosage: UNK
     Dates: start: 20100809
  2. FILGRASTIM [Suspect]
     Indication: BREAST CANCER
     Dosage: 5 A?G/KG, UNK
     Route: 058
     Dates: start: 20100719
  3. PEGFILGRASTIM [Suspect]
     Indication: BREAST CANCER
     Dosage: 6 MG, UNK
     Route: 058
     Dates: start: 20100723
  4. DOXORUBICIN HCL [Concomitant]
     Indication: BREAST CANCER
     Dosage: 60 MG/M2, UNK
     Route: 042
     Dates: start: 20100719
  5. CYCLOPHOSPHAMIDE [Concomitant]
     Indication: BREAST CANCER
     Dosage: 600 MG/M2, UNK
     Route: 042
     Dates: start: 20100719
  6. BEVACIZUMAB [Concomitant]
     Indication: BREAST CANCER
     Dosage: UNK
     Route: 040
     Dates: start: 20100719
  7. LEVAQUIN [Concomitant]
     Dosage: UNK
     Dates: start: 20100809

REACTIONS (3)
  - COLITIS [None]
  - LARGE INTESTINE PERFORATION [None]
  - HAEMOGLOBIN DECREASED [None]
